FAERS Safety Report 16991855 (Version 1)
Quarter: 2019Q4

REPORT INFORMATION
  Report Type: Spontaneous
  Country: US (occurrence: US)
  Receive Date: 20190920
  Receipt Date: 20190920
  Transmission Date: 20200122
  Serious: Yes (Hospitalization)
  Sender: FDA-Public Use
  Company Number: None

PATIENT
  Age: 50 Year
  Sex: Female
  Weight: 94.7 kg

DRUGS (2)
  1. CISPLATIN. [Suspect]
     Active Substance: CISPLATIN
     Dates: end: 20190828
  2. GEMCITABINE HYDROCHLORIDE. [Suspect]
     Active Substance: GEMCITABINE HYDROCHLORIDE
     Dates: end: 20190828

REACTIONS (19)
  - Dyspnoea [None]
  - Tachycardia [None]
  - Platelet count decreased [None]
  - Anaemia [None]
  - Vulvovaginal erythema [None]
  - Pyrexia [None]
  - Micturition urgency [None]
  - Asthenia [None]
  - Hypophagia [None]
  - Vulval oedema [None]
  - Nausea [None]
  - Hyperhidrosis [None]
  - Dysuria [None]
  - Leukopenia [None]
  - Neutrophil count decreased [None]
  - Chills [None]
  - Radiation associated pain [None]
  - Genital exfoliation [None]
  - Secretion discharge [None]

NARRATIVE: CASE EVENT DATE: 20190903
